FAERS Safety Report 5794401-7 (Version None)
Quarter: 2008Q2

REPORT INFORMATION
  Report Type: 
  Country: None (occurrence: None)
  Receive Date: 20080623
  Receipt Date: 20080616
  Transmission Date: 20081010
  Serious: Yes (Disabling)
  Sender: FDA-Public Use
  Company Number: 200812906

PATIENT
  Age: 19 Year
  Sex: Male

DRUGS (2)
  1. HAEMATE P (FACTOR VIII (ANTIHAEMOPHILIC FACTOR)) [Suspect]
     Indication: INJURY
     Dosage: IV
     Route: 042
     Dates: start: 20070301
  2. HAEMATE P (FACTOR VIII (ANTIHAEMOPHILIC FACTOR)) [Suspect]
     Indication: VON WILLEBRAND'S DISEASE
     Dosage: IV
     Route: 042
     Dates: start: 20070301

REACTIONS (1)
  - HEPATITIS C ANTIBODY POSITIVE [None]
